FAERS Safety Report 25128050 (Version 5)
Quarter: 2025Q3

REPORT INFORMATION
  Report Type: Report from Study
  Country: CA (occurrence: CA)
  Receive Date: 20250327
  Receipt Date: 20250811
  Transmission Date: 20251021
  Serious: Yes (Hospitalization)
  Sender: SAMSUNG BIOEPIS
  Company Number: CA-SAMSUNG BIOEPIS-SB-2025-10720

PATIENT
  Age: 78 Year
  Sex: Male
  Weight: 89 kg

DRUGS (8)
  1. RENFLEXIS [Suspect]
     Active Substance: INFLIXIMAB-ABDA
     Indication: Colitis ulcerative
     Route: 042
     Dates: start: 20230916
  2. RENFLEXIS [Suspect]
     Active Substance: INFLIXIMAB-ABDA
     Route: 042
  3. RENFLEXIS [Suspect]
     Active Substance: INFLIXIMAB-ABDA
     Route: 042
     Dates: start: 20230916
  4. SPIRONOLACTONE [Concomitant]
     Active Substance: SPIRONOLACTONE
     Indication: Product used for unknown indication
  5. ENTRESTO [Concomitant]
     Active Substance: SACUBITRIL\VALSARTAN
     Indication: Product used for unknown indication
  6. DAPAGLIFLOZIN [Concomitant]
     Active Substance: DAPAGLIFLOZIN
     Indication: Product used for unknown indication
  7. METAMUCIL [INULIN] [Concomitant]
     Indication: Product used for unknown indication
  8. POLYETHYLENE GLYCOL 3350 [Concomitant]
     Active Substance: POLYETHYLENE GLYCOL 3350
     Indication: Product used for unknown indication

REACTIONS (13)
  - Vomiting [Recovered/Resolved]
  - Diarrhoea [Unknown]
  - Hypotension [Recovering/Resolving]
  - Skin ulcer [Unknown]
  - Oedema peripheral [Unknown]
  - Malaise [Unknown]
  - Eating disorder [Unknown]
  - Weight increased [Unknown]
  - Skin laceration [Unknown]
  - Impaired healing [Unknown]
  - Injection site injury [Unknown]
  - Skin weeping [Unknown]
  - Off label use [Unknown]
